FAERS Safety Report 4866931-3 (Version None)
Quarter: 2005Q4

REPORT INFORMATION
  Report Type: 
  Country: None (occurrence: None)
  Receive Date: 20051222
  Receipt Date: 20051207
  Transmission Date: 20060501
  Serious: Yes (Hospitalization)
  Sender: FDA-Public Use
  Company Number: 220334

PATIENT
  Age: 60 Year
  Sex: Male

DRUGS (7)
  1. MABTHERA                            (RITUXIMAB) CONC FOR SOLUTION FOR [Suspect]
     Dosage: INTRAVENOUS
     Route: 042
     Dates: start: 20050323, end: 20050326
  2. IDARUBICIN HCL [Suspect]
     Indication: CHRONIC LYMPHOCYTIC LEUKAEMIA
     Dosage: INTRAVENOUS
     Route: 042
     Dates: start: 20050323, end: 20050326
  3. ROVALCYTE                  (VALGANCICLOVIR HYDROCHLORIDE) [Suspect]
     Indication: VIRAL INFECTION
     Dosage: INTRAVENOUS
     Route: 042
     Dates: start: 20050326, end: 20050331
  4. DEXAMETHASONE [Concomitant]
  5. VFEND [Concomitant]
  6. VINCRISTINE [Concomitant]
  7. NEORECORMON            (EPOETIN BETA) [Concomitant]

REACTIONS (4)
  - FEBRILE BONE MARROW APLASIA [None]
  - HAEMOLYSIS [None]
  - RENAL FAILURE [None]
  - UNEVALUABLE EVENT [None]
